FAERS Safety Report 9883184 (Version 2)
Quarter: 2014Q3

REPORT INFORMATION
  Report Type: Spontaneous
  Country: US (occurrence: US)
  Receive Date: 20140208
  Receipt Date: 20140806
  Transmission Date: 20150326
  Serious: Yes (Hospitalization, Other)
  Sender: FDA-Public Use
  Company Number: US-009507513-1402USA003587

PATIENT
  Sex: Female
  Weight: 68 kg

DRUGS (1)
  1. NUVARING [Suspect]
     Active Substance: ETHINYL ESTRADIOL\ETONOGESTREL
     Indication: CONTRACEPTION
     Dosage: UNK
     Route: 067
     Dates: end: 201310

REACTIONS (7)
  - Attention deficit/hyperactivity disorder [Unknown]
  - Normochromic normocytic anaemia [Unknown]
  - Pulmonary embolism [Unknown]
  - Wisdom teeth removal [Unknown]
  - Sinusitis [Unknown]
  - Pulmonary embolism [Unknown]
  - Anxiety [Unknown]

NARRATIVE: CASE EVENT DATE: 201309
